FAERS Safety Report 23615067 (Version 1)
Quarter: 2024Q1

REPORT INFORMATION
  Report Type: Spontaneous
  Country: GB (occurrence: GB)
  Receive Date: 20240311
  Receipt Date: 20240311
  Transmission Date: 20240410
  Serious: Yes (Life-Threatening)
  Sender: FDA-Public Use
  Company Number: GB-CHELONIA-Promethazine-240301-01

PATIENT
  Sex: Female

DRUGS (1)
  1. PROMETHAZINE HYDROCHLORIDE [Suspect]
     Active Substance: PROMETHAZINE HYDROCHLORIDE
     Indication: Psychotic disorder
     Route: 065
     Dates: start: 202401, end: 20240216

REACTIONS (13)
  - Dizziness [Recovered/Resolved]
  - Feeding disorder [Recovered/Resolved]
  - Feeling abnormal [Recovered/Resolved]
  - Gait inability [Recovered/Resolved]
  - Nausea [Recovered/Resolved]
  - Seizure [Recovered/Resolved]
  - Somnolence [Recovered/Resolved]
  - Impaired driving ability [Recovered/Resolved]
  - Insomnia [Recovered/Resolved]
  - Off label use [Unknown]
  - Speech disorder [Recovered/Resolved]
  - Somnolence [Recovered/Resolved]
  - Dyspnoea [Recovered/Resolved]

NARRATIVE: CASE EVENT DATE: 20240101
